FAERS Safety Report 19187136 (Version 1)
Quarter: 2021Q2

REPORT INFORMATION
  Report Type: Spontaneous
  Country: US (occurrence: US)
  Receive Date: 20210428
  Receipt Date: 20210428
  Transmission Date: 20210717
  Serious: No
  Sender: FDA-Public Use
  Company Number: US-ELI_LILLY_AND_COMPANY-US202103014524

PATIENT
  Age: 14 Year
  Sex: Male

DRUGS (3)
  1. LANTUS [Concomitant]
     Active Substance: INSULIN GLARGINE
     Indication: TYPE 1 DIABETES MELLITUS
  2. HUMALOG [Suspect]
     Active Substance: INSULIN LISPRO
     Indication: TYPE 1 DIABETES MELLITUS
     Dosage: 2?3 U, UNKNOWN (PER MEAL)
     Route: 058
     Dates: start: 202009
  3. HUMALOG [Suspect]
     Active Substance: INSULIN LISPRO
     Dosage: 2?3 U, UNKNOWN (PER MEAL)
     Route: 058

REACTIONS (4)
  - Blood glucose decreased [Unknown]
  - Drug ineffective [Recovered/Resolved]
  - Blood glucose increased [Recovering/Resolving]
  - Incorrect product administration duration [Recovered/Resolved]

NARRATIVE: CASE EVENT DATE: 202101
